FAERS Safety Report 6340432-8 (Version None)
Quarter: 2009Q3

REPORT INFORMATION
  Report Type: 
  Country: None (occurrence: None)
  Receive Date: 20090904
  Receipt Date: 20071009
  Transmission Date: 20100115
  Serious: Yes (Other)
  Sender: FDA-Public Use
  Company Number: US-ASTRAZENECA-2006UW25242

PATIENT
  Age: 13716 Day
  Sex: Female
  Weight: 98.9 kg

DRUGS (9)
  1. SEROQUEL [Suspect]
     Indication: ANXIETY
     Route: 048
     Dates: start: 20030501, end: 20040101
  2. SEROQUEL [Suspect]
     Indication: DEPRESSION
     Route: 048
     Dates: start: 20030501, end: 20040101
  3. SEROQUEL [Suspect]
     Dosage: 100
     Route: 048
     Dates: start: 20030909
  4. SEROQUEL [Suspect]
     Dosage: 100
     Route: 048
     Dates: start: 20030909
  5. AVANDIA [Concomitant]
     Route: 048
     Dates: start: 20030909
  6. MONOPRIL [Concomitant]
     Dates: start: 20030909
  7. GLUCOTROL [Concomitant]
     Dates: start: 20030909
  8. GLUCOVANCE [Concomitant]
     Dates: start: 20050104
  9. ZOLOFT [Concomitant]
     Dosage: 100
     Dates: start: 20030909

REACTIONS (5)
  - DIABETES MELLITUS [None]
  - INSULIN-REQUIRING TYPE 2 DIABETES MELLITUS [None]
  - RENAL FAILURE CHRONIC [None]
  - TYPE 1 DIABETES MELLITUS [None]
  - TYPE 2 DIABETES MELLITUS [None]
